FAERS Safety Report 24218433 (Version 1)
Quarter: 2024Q3

REPORT INFORMATION
  Report Type: Report from Study
  Country: CA (occurrence: CA)
  Receive Date: 20240816
  Receipt Date: 20240816
  Transmission Date: 20241016
  Serious: Yes (Other)
  Sender: TAKEDA
  Company Number: CA-TAKEDA-2024TUS081904

PATIENT
  Sex: Female

DRUGS (3)
  1. VEDOLIZUMAB [Suspect]
     Active Substance: VEDOLIZUMAB
     Indication: Colitis ulcerative
     Dosage: 300 MILLIGRAM
     Route: 042
     Dates: start: 20220218
  2. Salofalk [Concomitant]
     Dosage: UNK
     Dates: start: 19981230
  3. Salofalk [Concomitant]
     Dosage: 4000 MILLIGRAM
     Dates: start: 20180223

REACTIONS (1)
  - Palpitations [Not Recovered/Not Resolved]
